FAERS Safety Report 6077055-4 (Version None)
Quarter: 2009Q1

REPORT INFORMATION
  Report Type: 
  Country: None (occurrence: None)
  Receive Date: 20090213
  Receipt Date: 20090127
  Transmission Date: 20090719
  Serious: No
  Sender: FDA-Public Use
  Company Number: FR-EISAI MEDICAL RESEARCH-E2020-04038-SPO-FR

PATIENT
  Age: 80 Year
  Sex: Male

DRUGS (5)
  1. ARICEPT [Suspect]
     Indication: DEMENTIA ALZHEIMER'S TYPE
     Dosage: UNKNOWN
     Route: 048
  2. SPIRONOLACTONE [Concomitant]
  3. LYSINE ACETYLSALICYLATE [Concomitant]
  4. CITALOPRAM HYDROBROMIDE [Concomitant]
  5. EBIXA [Concomitant]

REACTIONS (2)
  - DYSTONIA [None]
  - PLEUROTHOTONUS [None]
